FAERS Safety Report 23983577 (Version 1)
Quarter: 2024Q2

REPORT INFORMATION
  Report Type: Spontaneous
  Country: NL (occurrence: NL)
  Receive Date: 20240618
  Receipt Date: 20240618
  Transmission Date: 20240715
  Serious: Yes (Other)
  Sender: FDA-Public Use
  Company Number: NL-LRB-00967609

PATIENT
  Age: 44 Year
  Sex: Female
  Weight: 73 kg

DRUGS (1)
  1. ACETAMINOPHEN\TRAMADOL [Suspect]
     Active Substance: ACETAMINOPHEN\TRAMADOL
     Indication: Headache
     Dosage: 1 DOSAGE FORM, 3 TIMES A DAY (1 TABLET 3 TIMES A DAY)
     Route: 065
     Dates: start: 20240415, end: 20240416

REACTIONS (2)
  - Syncope [Recovering/Resolving]
  - Nausea [Recovering/Resolving]
